FAERS Safety Report 9059950 (Version 1)
Quarter: 2013Q1

REPORT INFORMATION
  Report Type: Spontaneous
  Country: US (occurrence: None)
  Receive Date: 20130118
  Receipt Date: 20130118
  Transmission Date: 20140127
  Serious: Yes (Other)
  Sender: FDA-Public Use
  Company Number: IMP_06131_2013

PATIENT
  Age: 40 Year
  Sex: Female

DRUGS (1)
  1. MINOCYCLINE [Suspect]
     Dosage: (DF)

REACTIONS (5)
  - Arteritis [None]
  - Antinuclear antibody positive [None]
  - Histone antibody positive [None]
  - Antiphospholipid antibodies positive [None]
  - Lupus-like syndrome [None]
